FAERS Safety Report 24583376 (Version 2)
Quarter: 2024Q4

REPORT INFORMATION
  Report Type: Spontaneous
  Country: US (occurrence: US)
  Receive Date: 20241106
  Receipt Date: 20241114
  Transmission Date: 20250114
  Serious: No
  Sender: Kenvue
  Company Number: US-KENVUE-20241028275

PATIENT
  Age: 22 Year
  Sex: Male

DRUGS (1)
  1. MENS ROGAINE EXTRA STRENGTH [Suspect]
     Active Substance: MINOXIDIL
     Indication: Alopecia
     Dosage: 2 MILLILITER, SINGLE
     Route: 061
     Dates: start: 20241010, end: 20241010

REACTIONS (3)
  - Application site pruritus [Recovering/Resolving]
  - Application site irritation [Recovering/Resolving]
  - Application site erythema [Recovering/Resolving]

NARRATIVE: CASE EVENT DATE: 20241010
